FAERS Safety Report 7945719-0 (Version None)
Quarter: 2011Q4

REPORT INFORMATION
  Report Type: 
  Country: None (occurrence: None)
  Receive Date: 20111129
  Receipt Date: 20110921
  Transmission Date: 20120403
  Serious: No
  Sender: FDA-Public Use
  Company Number: US-MYLANLABS-2011S1019657

PATIENT
  Age: 83 Year
  Sex: Female

DRUGS (2)
  1. CLONAZEPAM [Suspect]
     Indication: INSOMNIA
     Dates: start: 20100101
  2. THYROID SUPPLEMENT [Concomitant]

REACTIONS (3)
  - DYSGEUSIA [None]
  - WEIGHT DECREASED [None]
  - ABDOMINAL PAIN UPPER [None]
